FAERS Safety Report 7658264 (Version 4)
Quarter: 2013Q1

REPORT INFORMATION
  Report Type: Report from Study
  Country: FR (occurrence: FR)
  Receive Date: 20101105
  Receipt Date: 20130307
  Transmission Date: 20140127
  Serious: Yes (Hospitalization, Other)
  Sender: FDA-Public Use
  Company Number: FR-GENZYME-CLOF-1001299

PATIENT
  Age: 38 Year
  Sex: Female

DRUGS (12)
  1. EVOLTRA [Suspect]
     Indication: ACUTE MYELOID LEUKAEMIA
     Dosage: 30 MG/M2, QDX5
     Route: 041
     Dates: start: 20100823, end: 20100827
  2. EVOLTRA [Suspect]
     Indication: BONE MARROW CONDITIONING REGIMEN
  3. ARACYTINE [Suspect]
     Indication: ACUTE MYELOID LEUKAEMIA
     Dosage: 1000 MG/M2, QDX5
     Route: 042
     Dates: start: 20100823, end: 20100827
  4. ARACYTINE [Suspect]
     Indication: BONE MARROW CONDITIONING REGIMEN
  5. ENDOXAN [Suspect]
     Indication: ACUTE MYELOID LEUKAEMIA
     Dosage: 60 MG/KG, QD DAY -5
     Route: 065
     Dates: start: 20100831, end: 20100831
  6. ENDOXAN [Suspect]
     Indication: BONE MARROW CONDITIONING REGIMEN
  7. BUSILVEX [Suspect]
     Indication: ACUTE MYELOID LEUKAEMIA
     Dosage: 3.2 MG/KG, QD
     Route: 042
     Dates: start: 20100901, end: 20100902
  8. BUSILVEX [Suspect]
     Indication: BONE MARROW CONDITIONING REGIMEN
  9. THYMOGLOBULINE [Suspect]
     Indication: ACUTE MYELOID LEUKAEMIA
     Dosage: 2.5 MG/KG, QD
     Route: 042
     Dates: start: 20100902, end: 20100903
  10. THYMOGLOBULINE [Suspect]
     Indication: BONE MARROW CONDITIONING REGIMEN
  11. CICLOSPORIN [Concomitant]
     Indication: PRODUCT USED FOR UNKNOWN INDICATION
     Dosage: UNK
     Route: 065
     Dates: start: 20100902
  12. CELLCEPT [Concomitant]
     Indication: PRODUCT USED FOR UNKNOWN INDICATION
     Dosage: UNK
     Route: 065
     Dates: start: 20100902

REACTIONS (2)
  - Encephalitis [Recovered/Resolved]
  - Acute myeloid leukaemia [Unknown]
